FAERS Safety Report 8514931-4 (Version None)
Quarter: 2012Q3

REPORT INFORMATION
  Report Type: 
  Country: None (occurrence: None)
  Receive Date: 20120717
  Receipt Date: 20120709
  Transmission Date: 20120928
  Serious: Yes (Hospitalization, Disabling, Other)
  Sender: FDA-Public Use
  Company Number: NO-ROCHE-1087939

PATIENT
  Sex: Female

DRUGS (12)
  1. SINGULAIR [Concomitant]
  2. ATROVENT [Concomitant]
     Indication: ASTHMA
  3. IMURAN [Concomitant]
  4. EPIPEN [Concomitant]
  5. SYMBICORT [Concomitant]
  6. CETRIZINE (UNK INGREDIENTS) [Concomitant]
  7. FLUTICASONE PROPIONATE [Concomitant]
  8. PREDNISOLONE [Concomitant]
     Indication: ASTHMA
  9. XOLAIR [Suspect]
     Indication: PRODUCT USED FOR UNKNOWN INDICATION
     Dates: start: 20120202
  10. XOLAIR [Suspect]
     Dates: start: 20120424
  11. VENTOLIN [Concomitant]
     Indication: ASTHMA
  12. XOLAIR [Suspect]
     Dates: start: 20120510

REACTIONS (9)
  - OEDEMA PERIPHERAL [None]
  - INFLUENZA [None]
  - PRESYNCOPE [None]
  - INCORRECT DOSE ADMINISTERED [None]
  - ALOPECIA [None]
  - TACHYCARDIA [None]
  - PARAESTHESIA [None]
  - ASTHMA [None]
  - NEUTROPENIA [None]
